FAERS Safety Report 13486091 (Version 1)
Quarter: 2017Q2

REPORT INFORMATION
  Report Type: Spontaneous
  Country: US (occurrence: US)
  Receive Date: 20170426
  Receipt Date: 20170426
  Transmission Date: 20170830
  Serious: Yes (Hospitalization, Other)
  Sender: FDA-Public Use
  Company Number: US-BRISTOL-MYERS SQUIBB COMPANY-BMS-2017-034917

PATIENT
  Age: 42 Year
  Sex: Female

DRUGS (1)
  1. WARFARIN SODIUM. [Suspect]
     Active Substance: WARFARIN SODIUM
     Indication: PULMONARY EMBOLISM
     Dosage: UNK
     Route: 065

REACTIONS (6)
  - Transfusion [Unknown]
  - Haemodialysis [Unknown]
  - Obstructive uropathy [Recovered/Resolved]
  - Haematoma evacuation [Unknown]
  - Acute kidney injury [Recovered/Resolved]
  - Abdominal wall haematoma [Recovered/Resolved]
